FAERS Safety Report 18241711 (Version 1)
Quarter: 2020Q3

REPORT INFORMATION
  Report Type: Spontaneous
  Country: US (occurrence: US)
  Receive Date: 20200907
  Receipt Date: 20200907
  Transmission Date: 20201103
  Serious: No
  Sender: FDA-Public Use
  Company Number: None

PATIENT
  Age: 43 Year
  Sex: Female
  Weight: 53.1 kg

DRUGS (8)
  1. SUBOXONE [Concomitant]
     Active Substance: BUPRENORPHINE HYDROCHLORIDE\NALOXONE HYDROCHLORIDE
  2. TIZANIDINE. [Concomitant]
     Active Substance: TIZANIDINE
  3. MILK OF MAGNESIA [Concomitant]
     Active Substance: MAGNESIUM HYDROXIDE
  4. AIMOVIG [Suspect]
     Active Substance: ERENUMAB-AOOE
     Indication: PRODUCT USED FOR UNKNOWN INDICATION
     Dosage: ?          QUANTITY:1 INJECTION(S);OTHER FREQUENCY:MONTHLY;?
     Route: 058
     Dates: start: 20200822, end: 20200822
  5. GABAPENTIN. [Concomitant]
     Active Substance: GABAPENTIN
  6. PANTROPRAZOLE [Concomitant]
  7. ONDANESETRON [Concomitant]
  8. DICYCLOMINE [Concomitant]
     Active Substance: DICYCLOMINE HYDROCHLORIDE

REACTIONS (7)
  - Dyspepsia [None]
  - Hyperhidrosis [None]
  - Renal pain [None]
  - Abdominal pain upper [None]
  - Constipation [None]
  - Dry mouth [None]
  - Bedridden [None]

NARRATIVE: CASE EVENT DATE: 20200903
